FAERS Safety Report 19136321 (Version 1)
Quarter: 2021Q2

REPORT INFORMATION
  Report Type: Spontaneous
  Country: US (occurrence: US)
  Receive Date: 20210414
  Receipt Date: 20210414
  Transmission Date: 20210717
  Serious: No
  Sender: FDA-Public Use
  Company Number: US-009507513-2104USA002796

PATIENT
  Age: 68 Year
  Sex: Male

DRUGS (4)
  1. REBETOL [Suspect]
     Active Substance: RIBAVIRIN
     Dosage: 12 WEEKS OF DURATION
     Route: 048
  2. PEGINTRON [Suspect]
     Active Substance: PEGINTERFERON ALFA-2B
     Indication: HEPATITIS C
     Dosage: UNK
  3. SOFOSBUVIR [Suspect]
     Active Substance: SOFOSBUVIR
     Indication: HEPATITIS C
     Dosage: UNK
  4. REBETOL [Suspect]
     Active Substance: RIBAVIRIN
     Dosage: 12 WEEKS OF DURATION
     Route: 048

REACTIONS (1)
  - Treatment failure [Unknown]
